FAERS Safety Report 10204555 (Version 7)
Quarter: 2016Q2

REPORT INFORMATION
  Report Type: Report from Study
  Country: US (occurrence: US)
  Receive Date: 20140529
  Receipt Date: 20160425
  Transmission Date: 20160815
  Serious: Yes (Life-Threatening, Hospitalization)
  Sender: FDA-Public Use
  Company Number: US-SA-2014SA051246

PATIENT
  Age: 44 Year
  Sex: Female

DRUGS (4)
  1. AUBAGIO [Suspect]
     Active Substance: TERIFLUNOMIDE
     Indication: MULTIPLE SCLEROSIS
     Route: 048
     Dates: start: 20140403, end: 20140422
  2. AUBAGIO [Suspect]
     Active Substance: TERIFLUNOMIDE
     Indication: MULTIPLE SCLEROSIS
     Route: 048
  3. LITHIUM. [Concomitant]
     Active Substance: LITHIUM
  4. TYSABRI [Concomitant]
     Active Substance: NATALIZUMAB

REACTIONS (12)
  - Vomiting [Unknown]
  - Dehydration [Recovered/Resolved]
  - Self injurious behaviour [Not Recovered/Not Resolved]
  - Anxiety [Not Recovered/Not Resolved]
  - Diplopia [Not Recovered/Not Resolved]
  - Angiopathy [Not Recovered/Not Resolved]
  - Thirst [Unknown]
  - Pollakiuria [Unknown]
  - Decreased appetite [Recovered/Resolved]
  - Nausea [Unknown]
  - Migraine [Unknown]
  - Headache [Unknown]
